FAERS Safety Report 8620113-8 (Version None)
Quarter: 2012Q3

REPORT INFORMATION
  Report Type: 
  Country: None (occurrence: None)
  Receive Date: 20120824
  Receipt Date: 20120815
  Transmission Date: 20120928
  Serious: Yes (Other)
  Sender: FDA-Public Use
  Company Number: US-ABBOTT-12P-163-0969571-00

PATIENT
  Sex: Female

DRUGS (1)
  1. HUMIRA [Suspect]
     Indication: CROHN'S DISEASE
     Dosage: EVERY OTHER WEEK AS DIRECTED BY PHYSICIAN, KEEP REFRIGERATED, DO NO FREEZE, CLEAR
     Route: 058
     Dates: start: 20120101

REACTIONS (4)
  - GASTROINTESTINAL INFLAMMATION [None]
  - FREQUENT BOWEL MOVEMENTS [None]
  - INTESTINAL MUCOSAL HYPERTROPHY [None]
  - DIARRHOEA [None]
